FAERS Safety Report 7562195-0 (Version None)
Quarter: 2011Q2

REPORT INFORMATION
  Report Type: 
  Country: None (occurrence: None)
  Receive Date: 20110620
  Receipt Date: 20110620
  Transmission Date: 20111010
  Serious: Yes (Other)
  Sender: FDA-Public Use
  Company Number: None

PATIENT
  Sex: Female

DRUGS (1)
  1. XOLAIR [Suspect]
     Dosage: 300MG Q4W SQ
     Route: 058
     Dates: start: 20100510, end: 20110525

REACTIONS (4)
  - INJECTION SITE SWELLING [None]
  - CHILLS [None]
  - INJECTION SITE RASH [None]
  - PYREXIA [None]
